FAERS Safety Report 7474774-X (Version None)
Quarter: 2011Q2

REPORT INFORMATION
  Report Type: 
  Country: None (occurrence: None)
  Receive Date: 20110505
  Receipt Date: 20110425
  Transmission Date: 20111010
  Serious: Yes (Hospitalization, Other)
  Sender: FDA-Public Use
  Company Number: FK201100816

PATIENT
  Age: 36 Year
  Sex: Male

DRUGS (3)
  1. LEVOPROME [Suspect]
     Indication: PSYCHOTIC DISORDER
  2. TRIHEXYPHENIDYL HCL [Suspect]
     Indication: TREMOR
  3. HALOPERIDOL DECANOATE [Suspect]
     Indication: PSYCHOTIC DISORDER

REACTIONS (9)
  - HYPERPHOSPHATAEMIA [None]
  - TREMOR [None]
  - ALCOHOL ABUSE [None]
  - DYSARTHRIA [None]
  - HYPOPARATHYROIDISM [None]
  - FAHR'S DISEASE [None]
  - PSYCHOTIC DISORDER [None]
  - EXTRAPYRAMIDAL DISORDER [None]
  - EPILEPSY [None]
